FAERS Safety Report 8988933 (Version 1)
Quarter: 2012Q4

REPORT INFORMATION
  Report Type: 
  Country: NL (occurrence: NL)
  Receive Date: 20121228
  Receipt Date: 20121228
  Transmission Date: 20130627
  Serious: Yes (Death)
  Sender: FDA-Public Use
  Company Number: NL-ROCHE-1174528

PATIENT
  Age: 49 Year
  Sex: Male
  Weight: 93 kg

DRUGS (4)
  1. PEGASYS [Suspect]
     Indication: HEPATITIS C
     Route: 058
     Dates: start: 20120112
  2. COPEGUS [Interacting]
     Indication: HEPATITIS C
     Route: 048
     Dates: start: 20120112
  3. PROPRANOLOL [Interacting]
     Indication: VARICOSE VEIN
     Route: 048
     Dates: start: 20090924, end: 20121129
  4. BOCEPREVIR [Suspect]
     Indication: PRODUCT USED FOR UNKNOWN INDICATION
     Route: 065

REACTIONS (2)
  - Myocarditis [Fatal]
  - Cardiomyopathy [Fatal]
